FAERS Safety Report 19951582 (Version 2)
Quarter: 2021Q4

REPORT INFORMATION
  Report Type: Spontaneous
  Country: US (occurrence: US)
  Receive Date: 20211013
  Receipt Date: 20211022
  Transmission Date: 20220303
  Serious: Yes (Hospitalization, Other)
  Sender: FDA-Public Use
  Company Number: US-ROCHE-2930127

PATIENT
  Age: 84 Year
  Sex: Female
  Weight: 86 kg

DRUGS (9)
  1. ACTEMRA [Suspect]
     Active Substance: TOCILIZUMAB
     Indication: COVID-19
     Route: 040
     Dates: start: 20210904, end: 20210904
  2. VANCOMYCIN [Concomitant]
     Active Substance: VANCOMYCIN
  3. AZITHROMYCIN ANHYDROUS [Concomitant]
     Active Substance: AZITHROMYCIN ANHYDROUS
  4. ZOSYN [Concomitant]
     Active Substance: PIPERACILLIN SODIUM\TAZOBACTAM SODIUM
  5. UNASYN [Concomitant]
     Active Substance: AMPICILLIN SODIUM\SULBACTAM SODIUM
  6. DEXAMETHASONE [Concomitant]
     Active Substance: DEXAMETHASONE
     Dates: start: 20210902, end: 20210911
  7. REMDESIVIR [Concomitant]
     Active Substance: REMDESIVIR
  8. DOBUTAMINE [Concomitant]
     Active Substance: DOBUTAMINE HYDROCHLORIDE
  9. NOREPINEPHRINE [Concomitant]
     Active Substance: NOREPINEPHRINE

REACTIONS (10)
  - Off label use [Unknown]
  - Dyspnoea [Unknown]
  - Septic shock [Recovered/Resolved]
  - Infection susceptibility increased [Unknown]
  - Fatigue [Unknown]
  - Cardiomegaly [Unknown]
  - Pulmonary oedema [Unknown]
  - Aspiration [Unknown]
  - Cardiogenic shock [Unknown]
  - Procalcitonin decreased [Unknown]

NARRATIVE: CASE EVENT DATE: 20210930
